FAERS Safety Report 4380655-0 (Version None)
Quarter: 2004Q2

REPORT INFORMATION
  Report Type: 
  Country: None (occurrence: None)
  Receive Date: 20040618
  Receipt Date: 20040609
  Transmission Date: 20050107
  Serious: Yes (Hospitalization)
  Sender: FDA-Public Use
  Company Number: AU-ROCHE-370432

PATIENT
  Age: 17 Year
  Sex: Male

DRUGS (2)
  1. ROACCUTANE [Suspect]
     Indication: ACNE
     Route: 048
     Dates: start: 20030115
  2. ZYPREXA [Concomitant]
     Route: 048

REACTIONS (2)
  - AFFECTIVE DISORDER [None]
  - DEPRESSION [None]
